FAERS Safety Report 5182625-1 (Version None)
Quarter: 2006Q4

REPORT INFORMATION
  Report Type: 
  Country: None (occurrence: None)
  Receive Date: 20061220
  Receipt Date: 20061211
  Transmission Date: 20070319
  Serious: Yes (Congenital Anomaly)
  Sender: FDA-Public Use
  Company Number: BR-JNJFOC-20061203590

PATIENT
  Sex: Female

DRUGS (2)
  1. TOPAMAX [Suspect]
     Route: 015
  2. TOPAMAX [Suspect]
     Indication: EPILEPSY
     Route: 015

REACTIONS (1)
  - FOETAL MALFORMATION [None]
